FAERS Safety Report 16337397 (Version 2)
Quarter: 2019Q2

REPORT INFORMATION
  Report Type: Spontaneous
  Country: JP (occurrence: JP)
  Receive Date: 20190521
  Receipt Date: 20190523
  Transmission Date: 20190711
  Serious: Yes (Other)
  Sender: FDA-Public Use
  Company Number: JP-PFIZER INC-2019209228

PATIENT
  Age: 53 Year
  Sex: Female

DRUGS (5)
  1. PEGYLATED LIPOSOMAL DOXORUBICIN [Suspect]
     Active Substance: DOXORUBICIN
     Indication: METASTASES TO LYMPH NODES
  2. PEGYLATED LIPOSOMAL DOXORUBICIN [Suspect]
     Active Substance: DOXORUBICIN
     Indication: OVARIAN CANCER STAGE III
  3. DAIKENCHUTO [Concomitant]
     Active Substance: HERBALS
     Indication: PHYTOTHERAPY
     Dosage: UNK
  4. PEGYLATED LIPOSOMAL DOXORUBICIN [Suspect]
     Active Substance: DOXORUBICIN
     Indication: OVARIAN CANCER STAGE III
     Dosage: UNK, (3 CYCLES) EVERY 4 WEEKS
     Route: 042
  5. MAGNESIUM OXIDE. [Concomitant]
     Active Substance: MAGNESIUM OXIDE
     Indication: PHYTOTHERAPY
     Dosage: UNK

REACTIONS (5)
  - Dermatitis bullous [Recovering/Resolving]
  - Angioedema [Recovering/Resolving]
  - Drug ineffective [Unknown]
  - Skin lesion [Recovering/Resolving]
  - Intertrigo [Recovering/Resolving]
